FAERS Safety Report 17341856 (Version 1)
Quarter: 2020Q1

REPORT INFORMATION
  Report Type: Spontaneous
  Country: US (occurrence: US)
  Receive Date: 20200129
  Receipt Date: 20200129
  Transmission Date: 20200409
  Serious: No
  Sender: FDA-Public Use
  Company Number: US-PUMA BIOTECHNOLOGY, LTD.-2019US011066

PATIENT

DRUGS (2)
  1. NERLYNX [Suspect]
     Active Substance: NERATINIB
     Indication: PRODUCT USED FOR UNKNOWN INDICATION
     Dosage: 240 MG, DAILY
     Route: 048
  2. NERLYNX [Suspect]
     Active Substance: NERATINIB
     Dosage: 2 DF, DAILY
     Route: 048

REACTIONS (2)
  - Product physical issue [Unknown]
  - Product dose omission [Unknown]
